FAERS Safety Report 6373684-9 (Version None)
Quarter: 2009Q3

REPORT INFORMATION
  Report Type: 
  Country: None (occurrence: None)
  Receive Date: 20090924
  Receipt Date: 20090707
  Transmission Date: 20100115
  Serious: Yes (Disabling, Other)
  Sender: FDA-Public Use
  Company Number: US-ASTRAZENECA-2009UW11275

PATIENT
  Age: 63 Year
  Sex: Female
  Weight: 52.2 kg

DRUGS (8)
  1. SEROQUEL [Suspect]
     Indication: BIPOLAR I DISORDER
     Route: 048
     Dates: start: 20070401
  2. SEROQUEL [Suspect]
     Route: 048
     Dates: start: 20080601, end: 20081201
  3. ABILIFY [Concomitant]
     Dates: start: 20080401, end: 20080901
  4. CLONOPIN [Concomitant]
  5. DYNACIRC [Concomitant]
  6. EFFEXOR [Concomitant]
     Dates: start: 20070101, end: 20080501
  7. LAMICTAL [Concomitant]
     Dates: start: 20040101, end: 20090101
  8. LITHIUM [Concomitant]
     Dates: start: 20040101, end: 20090101

REACTIONS (7)
  - AFFECTIVE DISORDER [None]
  - DRY MOUTH [None]
  - ORAL PAIN [None]
  - SUICIDAL IDEATION [None]
  - TARDIVE DYSKINESIA [None]
  - TONGUE DISORDER [None]
  - WEIGHT DECREASED [None]
